FAERS Safety Report 7778736-4 (Version None)
Quarter: 2011Q3

REPORT INFORMATION
  Report Type: 
  Country: None (occurrence: None)
  Receive Date: 20110926
  Receipt Date: 20110916
  Transmission Date: 20111222
  Serious: Yes (Hospitalization, Other)
  Sender: FDA-Public Use
  Company Number: US-BAYER-201016917NA

PATIENT
  Age: 44 Year
  Sex: Female
  Weight: 78 kg

DRUGS (2)
  1. YASMIN [Suspect]
     Indication: ORAL CONTRACEPTION
     Dosage: UNK
     Route: 048
     Dates: start: 20040701, end: 20080315
  2. GUAIFENESIN [Concomitant]
     Dosage: UNK UNK, PRN

REACTIONS (5)
  - FATIGUE [None]
  - EMOTIONAL DISTRESS [None]
  - PAIN [None]
  - MYOCARDIAL INFARCTION [None]
  - ANGINA PECTORIS [None]
